FAERS Safety Report 7497236-2 (Version None)
Quarter: 2011Q2

REPORT INFORMATION
  Report Type: 
  Country: None (occurrence: None)
  Receive Date: 20110523
  Receipt Date: 20110517
  Transmission Date: 20111010
  Serious: No
  Sender: FDA-Public Use
  Company Number: US-PFIZER INC-2008055648

PATIENT
  Sex: Female
  Weight: 61.36 kg

DRUGS (3)
  1. CALCIUM CARBONATE [Concomitant]
  2. GEODON [Suspect]
     Indication: SCHIZOPHRENIA
     Dosage: 40 MG, 2X/DAY
     Route: 048
     Dates: start: 20070801
  3. MULTI-VITAMINS [Concomitant]

REACTIONS (4)
  - ACTIVITIES OF DAILY LIVING IMPAIRED [None]
  - SLEEP PHASE RHYTHM DISTURBANCE [None]
  - MUSCLE STRAIN [None]
  - SOMNOLENCE [None]
